FAERS Safety Report 6364149-9 (Version None)
Quarter: 2009Q3

REPORT INFORMATION
  Report Type: 
  Country: None (occurrence: None)
  Receive Date: 20090919
  Receipt Date: 20090717
  Transmission Date: 20100115
  Serious: No
  Sender: FDA-Public Use
  Company Number: PR-ABBOTT-08P-131-0457710-00

PATIENT
  Sex: Female
  Weight: 63.56 kg

DRUGS (6)
  1. HUMIRA [Suspect]
     Indication: PSORIASIS
     Route: 058
     Dates: start: 20080401
  2. NEXIUM [Concomitant]
     Indication: GASTROOESOPHAGEAL REFLUX DISEASE
     Route: 048
  3. SYNTHROID [Concomitant]
     Indication: THYROIDECTOMY
     Route: 048
  4. AVAPRO [Concomitant]
     Indication: HYPERTENSION
     Route: 048
  5. CENTRUM CARDIO VITAMIN [Concomitant]
     Indication: VITAMIN SUPPLEMENTATION
     Route: 048
  6. XALATAN [Concomitant]
     Indication: GLAUCOMA
     Route: 047

REACTIONS (5)
  - EYE DISCHARGE [None]
  - EYE PRURITUS [None]
  - EYELID OEDEMA [None]
  - HYPERSENSITIVITY [None]
  - OCULAR HYPERAEMIA [None]
